FAERS Safety Report 12287175 (Version 2)
Quarter: 2016Q2

REPORT INFORMATION
  Report Type: Spontaneous
  Country: JP (occurrence: JP)
  Receive Date: 20160420
  Receipt Date: 20160614
  Transmission Date: 20160815
  Serious: Yes (Hospitalization)
  Sender: FDA-Public Use
  Company Number: PHJP2016JP009536

PATIENT
  Age: 18 Year
  Sex: Female

DRUGS (4)
  1. FLOMOX//MOXIFLOXACIN HYDROCHLORIDE [Concomitant]
     Indication: PRODUCT USED FOR UNKNOWN INDICATION
     Dosage: UNK
     Route: 048
     Dates: start: 20150811
  2. EMPYNASE [Concomitant]
     Active Substance: PANCRELIPASE
     Indication: PRODUCT USED FOR UNKNOWN INDICATION
     Dosage: 18000 MG, UNK
     Route: 048
     Dates: start: 20150811
  3. REBAMIPIDE [Concomitant]
     Active Substance: REBAMIPIDE
     Indication: PRODUCT USED FOR UNKNOWN INDICATION
     Dosage: UNK
     Route: 048
     Dates: start: 20150810
  4. VOLTAREN [Suspect]
     Active Substance: DICLOFENAC SODIUM
     Indication: PROCEDURAL PAIN
     Dosage: 25 MG, QD
     Route: 048
     Dates: start: 20150810, end: 201508

REACTIONS (4)
  - Dyspnoea [Recovered/Resolved]
  - Erythema [Recovered/Resolved]
  - Anaphylactoid reaction [Recovered/Resolved]
  - Rash generalised [Recovered/Resolved]

NARRATIVE: CASE EVENT DATE: 20150812
